FAERS Safety Report 7443338-6 (Version None)
Quarter: 2011Q2

REPORT INFORMATION
  Report Type: 
  Country: None (occurrence: None)
  Receive Date: 20110428
  Receipt Date: 20110415
  Transmission Date: 20111010
  Serious: Yes (Other)
  Sender: FDA-Public Use
  Company Number: US-BAYER-2010-002556

PATIENT
  Age: 33 Year
  Sex: Female
  Weight: 90.703 kg

DRUGS (11)
  1. FISH OIL [Concomitant]
     Dosage: UNK UNK, QD
     Dates: start: 20080101
  2. VIDOCIN [Concomitant]
     Dosage: UNK
     Dates: start: 20090827
  3. YAZ [Suspect]
     Indication: CONTRACEPTION
     Dosage: UNK
     Dates: start: 20081201, end: 20090801
  4. MELATONIN [Concomitant]
     Indication: SLEEP DISORDER THERAPY
     Dosage: 5 MG, UNK
     Dates: start: 20080101
  5. HYDROCODONE BITARTRATE AND ACETAMINOPHEN [Concomitant]
     Dosage: UNK
     Dates: start: 20090403
  6. CYCLOBENZAPRINE [Concomitant]
     Dosage: 10 MG, UNK
     Dates: start: 20090414
  7. SULFAMETHOXAZOLE TRIMETHOPRIM [Concomitant]
     Dosage: UNK
     Dates: start: 20090827
  8. TUSSIONEX [Concomitant]
     Dosage: UNK
     Dates: start: 20090203
  9. YASMIN [Suspect]
     Dosage: UNK
     Dates: start: 20070101, end: 20090801
  10. CEFDINIR [Concomitant]
     Dosage: 300 MG, UNK
     Dates: start: 20090203
  11. HYDROCODONE BITARTRATE AND ACETAMINOPHEN [Concomitant]
     Dosage: UNK
     Dates: start: 20090414

REACTIONS (3)
  - PAIN [None]
  - THROMBOSIS [None]
  - DEEP VEIN THROMBOSIS [None]
